FAERS Safety Report 12771449 (Version 1)
Quarter: 2016Q3

REPORT INFORMATION
  Report Type: Spontaneous
  Country: US (occurrence: US)
  Receive Date: 20160920
  Receipt Date: 20160920
  Transmission Date: 20161109
  Serious: No
  Sender: FDA-Public Use
  Company Number: None

PATIENT
  Age: 24 Year
  Sex: Male

DRUGS (5)
  1. CIMZIA [Suspect]
     Active Substance: CERTOLIZUMAB PEGOL
     Indication: CROHN^S DISEASE
     Dosage: TWO SYRINGES WEEKS 0,2,4 SUBCUTANEOUS
     Route: 058
     Dates: start: 20160715
  2. MESELAMINE [Concomitant]
  3. CORTIFOAM AER [Concomitant]
  4. LIDOCAINE. [Concomitant]
     Active Substance: LIDOCAINE
  5. IBUPROFEN. [Concomitant]
     Active Substance: IBUPROFEN

REACTIONS (1)
  - Condition aggravated [None]

NARRATIVE: CASE EVENT DATE: 201609
